FAERS Safety Report 13635002 (Version 1)
Quarter: 2017Q2

REPORT INFORMATION
  Report Type: Spontaneous
  Country: US (occurrence: US)
  Receive Date: 20170531
  Receipt Date: 20170531
  Transmission Date: 20170830
  Serious: No
  Sender: FDA-Public Use
  Company Number: US-ASTELLAS-1676963

PATIENT
  Age: 87 Year
  Sex: Female

DRUGS (5)
  1. TARCEVA [Suspect]
     Active Substance: ERLOTINIB HYDROCHLORIDE
     Indication: LUNG NEOPLASM MALIGNANT
     Route: 048
     Dates: start: 20150705
  2. ASPIRIN. [Concomitant]
     Active Substance: ASPIRIN
  3. GEMFIBROZIL. [Concomitant]
     Active Substance: GEMFIBROZIL
  4. HYDROCORTISONE. [Concomitant]
     Active Substance: HYDROCORTISONE
  5. FLUCONAZOLE. [Concomitant]
     Active Substance: FLUCONAZOLE

REACTIONS (1)
  - Rash [Unknown]

NARRATIVE: CASE EVENT DATE: 201510
